FAERS Safety Report 10477285 (Version 2)
Quarter: 2014Q3

REPORT INFORMATION
  Report Type: Spontaneous
  Country: GB (occurrence: GB)
  Receive Date: 20140926
  Receipt Date: 20140926
  Transmission Date: 20150326
  Serious: Yes (Death, Disabling, Other)
  Sender: FDA-Public Use
  Company Number: GB-AUROBINDO-AUR-APL-2014-04832

PATIENT
  Age: 94 Year
  Sex: Female

DRUGS (1)
  1. MIRTAZAPINE OD TABLETS 30 MG [Suspect]
     Active Substance: MIRTAZAPINE
     Indication: PRODUCT USED FOR UNKNOWN INDICATION
     Dosage: 30 MG,UNK,
     Route: 048
     Dates: start: 20140320

REACTIONS (6)
  - Product solubility abnormal [Unknown]
  - Euphoric mood [Recovered/Resolved]
  - Abasia [Recovered/Resolved]
  - Tremor [Recovered/Resolved]
  - Hallucination [Recovered/Resolved]
  - Faeces discoloured [Unknown]
